FAERS Safety Report 4904577-9 (Version None)
Quarter: 2006Q1

REPORT INFORMATION
  Report Type: 
  Country: None (occurrence: None)
  Receive Date: 20060113
  Receipt Date: 20051121
  Transmission Date: 20060701
  Serious: No
  Sender: FDA-Public Use
  Company Number: 2005SP004145

PATIENT
  Age: 45 Year
  Sex: Male
  Weight: 97.5234 kg

DRUGS (5)
  1. LUNESTA [Suspect]
     Indication: INITIAL INSOMNIA
     Dosage: 2 MG;HS;ORAL
     Route: 048
     Dates: start: 20051017, end: 20051001
  2. LAMOTRIGINE [Concomitant]
  3. LITHIUM [Concomitant]
  4. SEROQUEL [Concomitant]
  5. AMBIEN [Concomitant]

REACTIONS (1)
  - DYSGEUSIA [None]
